FAERS Safety Report 17196913 (Version 1)
Quarter: 2019Q4

REPORT INFORMATION
  Report Type: Spontaneous
  Country: US (occurrence: US)
  Receive Date: 20191202
  Receipt Date: 20191202
  Transmission Date: 20200122
  Serious: Yes (Hospitalization)
  Sender: FDA-Public Use
  Company Number: None

PATIENT
  Age: 65 Year
  Sex: Female
  Weight: 78.02 kg

DRUGS (18)
  1. TANDEM INSULIN PUMP [Concomitant]
  2. DEXCAMS GLUCOSE MONITOR [Concomitant]
  3. TRULICITY [Suspect]
     Active Substance: DULAGLUTIDE
     Indication: TYPE 1 DIABETES MELLITUS
     Dosage: ?          QUANTITY:0.75MG/0.5ML;?
     Route: 058
     Dates: start: 20191108, end: 20191108
  4. SYNTHROID [Concomitant]
     Active Substance: LEVOTHYROXINE SODIUM
  5. VENLAFAXINE [Concomitant]
     Active Substance: VENLAFAXINE HYDROCHLORIDE
  6. ASA [Concomitant]
     Active Substance: ASPIRIN
  7. PLAGUINIL [Concomitant]
  8. PANTOPRAZOLE [Concomitant]
     Active Substance: PANTOPRAZOLE
  9. BIOTIN [Concomitant]
     Active Substance: BIOTIN
  10. VITAMIN D3 [Concomitant]
     Active Substance: CHOLECALCIFEROL
  11. HAIR VITS [Concomitant]
  12. ZETIA [Concomitant]
     Active Substance: EZETIMIBE
  13. METOPROLOL LA [Concomitant]
  14. HCTZ [Concomitant]
     Active Substance: HYDROCHLOROTHIAZIDE
  15. NOVULIN INSULIN VIA PUMP [Concomitant]
  16. IMDUR [Concomitant]
     Active Substance: ISOSORBIDE MONONITRATE
  17. PLETAL [Concomitant]
     Active Substance: CILOSTAZOL
  18. LOSARTIN [Concomitant]
     Active Substance: LOSARTAN

REACTIONS (6)
  - Dysphagia [None]
  - Constipation [None]
  - Throat irritation [None]
  - Dyspepsia [None]
  - Vomiting [None]
  - Dehydration [None]

NARRATIVE: CASE EVENT DATE: 20191113
